FAERS Safety Report 10176033 (Version 1)
Quarter: 2014Q2

REPORT INFORMATION
  Report Type: Report from Study
  Country: DE (occurrence: DE)
  Receive Date: 20140516
  Receipt Date: 20140516
  Transmission Date: 20141212
  Serious: Yes (Death)
  Sender: FDA-Public Use
  Company Number: DE-CELGENEUS-062-21880-14050751

PATIENT
  Age: 70 Year
  Sex: Male

DRUGS (4)
  1. REVLIMID [Suspect]
     Indication: MYELODYSPLASTIC SYNDROME
     Route: 048
  2. REVLIMID [Suspect]
     Indication: LEUKAEMIA
  3. REVLIMID [Suspect]
     Indication: NEOPLASM MALIGNANT
  4. REVLIMID [Suspect]
     Indication: OFF LABEL USE

REACTIONS (1)
  - Death [Fatal]
